FAERS Safety Report 24567539 (Version 4)
Quarter: 2024Q4

REPORT INFORMATION
  Report Type: Report from Study
  Country: US (occurrence: US)
  Receive Date: 20241031
  Receipt Date: 20241217
  Transmission Date: 20250115
  Serious: Yes (Hospitalization, Other)
  Sender: ALEXION PHARMACEUTICALS
  Company Number: US-AstraZeneca-CH-00732468A

PATIENT
  Age: 61 Year
  Weight: 114.5 kg

DRUGS (15)
  1. TEZEPELUMAB [Suspect]
     Active Substance: TEZEPELUMAB
     Indication: Asthma
  2. TEZEPELUMAB [Suspect]
     Active Substance: TEZEPELUMAB
     Route: 058
  3. TEZEPELUMAB [Suspect]
     Active Substance: TEZEPELUMAB
  4. TEZEPELUMAB [Suspect]
     Active Substance: TEZEPELUMAB
     Route: 058
  5. FASENRA [Suspect]
     Active Substance: BENRALIZUMAB
  6. FASENRA [Suspect]
     Active Substance: BENRALIZUMAB
  7. CRESTOR [Suspect]
     Active Substance: ROSUVASTATIN CALCIUM
  8. CRESTOR [Suspect]
     Active Substance: ROSUVASTATIN CALCIUM
  9. BREZTRI [Suspect]
     Active Substance: BUDESONIDE\FORMOTEROL\GLYCOPYRROLATE
  10. BREZTRI [Suspect]
     Active Substance: BUDESONIDE\FORMOTEROL\GLYCOPYRROLATE
  11. SYMBICORT [Suspect]
     Active Substance: BUDESONIDE\FORMOTEROL FUMARATE DIHYDRATE
  12. SYMBICORT [Suspect]
     Active Substance: BUDESONIDE\FORMOTEROL FUMARATE DIHYDRATE
  13. PULMICORT TURBUHALER [Suspect]
     Active Substance: BUDESONIDE
  14. PULMICORT TURBUHALER [Suspect]
     Active Substance: BUDESONIDE
  15. AMOXICILLIN [Concomitant]
     Active Substance: AMOXICILLIN
     Dosage: 875 MILLIGRAM

REACTIONS (27)
  - Diverticulitis [Unknown]
  - Asthma [Unknown]
  - COVID-19 [Unknown]
  - Cough [Unknown]
  - Headache [Unknown]
  - Sinus congestion [Unknown]
  - Dyspnoea [Not Recovered/Not Resolved]
  - Wheezing [Unknown]
  - Intentional dose omission [Unknown]
  - Drug ineffective [Unknown]
  - Productive cough [Unknown]
  - Large intestine polyp [Unknown]
  - Dyspnoea [Unknown]
  - Chills [Unknown]
  - Product dose omission issue [Unknown]
  - Dyspnoea [Unknown]
  - Fatigue [Unknown]
  - Chest discomfort [Unknown]
  - Laboratory test abnormal [Unknown]
  - Acute sinusitis [Unknown]
  - Asthma [Unknown]
  - Irritability [Unknown]
  - Illness [Unknown]
  - Treatment failure [Unknown]
  - Paranasal sinus discomfort [Unknown]
  - Lung disorder [Unknown]
  - Inappropriate schedule of product administration [Unknown]
